FAERS Safety Report 23456207 (Version 1)
Quarter: 2024Q1

REPORT INFORMATION
  Report Type: Spontaneous
  Country: IT (occurrence: IT)
  Receive Date: 20240130
  Receipt Date: 20240130
  Transmission Date: 20240410
  Serious: Yes (Hospitalization, Other)
  Sender: FDA-Public Use
  Company Number: None

PATIENT

DRUGS (14)
  1. LAMOTRIGINE [Suspect]
     Active Substance: LAMOTRIGINE
     Indication: Epilepsy
     Dosage: UNK
     Route: 065
     Dates: start: 2022, end: 20220523
  2. LORAZEPAM [Suspect]
     Active Substance: LORAZEPAM
     Indication: Epilepsy
     Dosage: 4 MG
     Route: 065
     Dates: start: 2022
  3. VALPROATE SODIUM [Suspect]
     Active Substance: VALPROATE SODIUM
     Indication: Epilepsy
     Dosage: 750 MG, QD (750 MILLIGRAM PER DAY)
     Route: 065
  4. PERAMPANEL [Suspect]
     Active Substance: PERAMPANEL
     Indication: Epilepsy
     Dosage: 8 MG, QD (8 MILLIGRAM/DAY)
     Route: 065
  5. PERAMPANEL [Suspect]
     Active Substance: PERAMPANEL
     Dosage: 16 MG, QD (16 MILLIGRAM/DAY)
     Route: 065
     Dates: start: 2022
  6. LEVETIRACETAM [Suspect]
     Active Substance: LEVETIRACETAM
     Indication: Epilepsy
     Dosage: 3500 MG, QD (3500 MILLIGRAM, DAILY)
     Route: 065
     Dates: start: 2022
  7. LEVETIRACETAM [Suspect]
     Active Substance: LEVETIRACETAM
     Dosage: 2500 MG, QD (2500 MILLIGRAM, DAILY)
     Route: 065
     Dates: start: 2022
  8. CLONAZEPAM [Suspect]
     Active Substance: CLONAZEPAM
     Indication: Epilepsy
     Dosage: UNK
     Route: 065
     Dates: start: 2022
  9. LACOSAMIDE [Suspect]
     Active Substance: LACOSAMIDE
     Indication: Epilepsy
     Dosage: 200 MG, QD
     Route: 065
  10. CORTISONE ACETATE [Suspect]
     Active Substance: CORTISONE ACETATE
     Indication: Hypopituitarism
     Dosage: 31.25 MG, QD
     Route: 065
  11. CORTISONE ACETATE [Suspect]
     Active Substance: CORTISONE ACETATE
     Dosage: 50 MG, QD
     Route: 065
     Dates: start: 2022
  12. LEVOTHYROXINE SODIUM [Suspect]
     Active Substance: LEVOTHYROXINE SODIUM
     Indication: Hypopituitarism
     Dosage: 200 ?G, QD
     Route: 065
  13. SOMATROPIN [Suspect]
     Active Substance: SOMATROPIN
     Indication: Hypopituitarism
     Dosage: 0.4 MG, WE (0.4 MG/DAY 5 DAYS PER WEEK)
     Route: 065
  14. DESMOPRESSIN [Suspect]
     Active Substance: DESMOPRESSIN
     Indication: Diabetes insipidus
     Dosage: 180 ?G, QD
     Route: 065

REACTIONS (4)
  - Cerebral salt-wasting syndrome [Recovered/Resolved]
  - Seizure [Unknown]
  - Somnolence [Recovered/Resolved]
  - Multiple-drug resistance [Unknown]
